FAERS Safety Report 12327060 (Version 4)
Quarter: 2018Q2

REPORT INFORMATION
  Report Type: Report from Study
  Country: ES (occurrence: ES)
  Receive Date: 20160503
  Receipt Date: 20180516
  Transmission Date: 20180711
  Serious: Yes (Death, Other)
  Sender: FDA-Public Use
  Company Number: ES-CELGENEUS-ESP-2016031138

PATIENT
  Age: 47 Year
  Sex: Female
  Weight: 52.4 kg

DRUGS (6)
  1. VITAMIN D [Concomitant]
     Active Substance: CHOLECALCIFEROL
     Indication: METASTASES TO BONE
     Dosage: 880 IU (INTERNATIONAL UNIT)
     Route: 048
     Dates: start: 20160202, end: 20160307
  2. ABRAXANE [Suspect]
     Active Substance: PACLITAXEL
     Indication: BREAST CANCER METASTATIC
     Dosage: 260 MILLIGRAM/SQ. METER
     Route: 041
     Dates: start: 20151117, end: 20151228
  3. XGEVA [Concomitant]
     Active Substance: DENOSUMAB
     Indication: METASTASES TO BONE
     Dosage: 120 MILLIGRAM
     Route: 058
     Dates: start: 20160118, end: 20160307
  4. TENORMIN [Concomitant]
     Active Substance: ATENOLOL
     Indication: CARDIOMYOPATHY
     Dosage: 25 MILLIGRAM
     Route: 048
     Dates: start: 2012, end: 20160307
  5. CALCIUM [Concomitant]
     Active Substance: CALCIUM
     Indication: METASTASES TO BONE
     Dosage: 1000 MILLIGRAM
     Route: 048
     Dates: start: 20160202, end: 20160307
  6. ABRAXANE [Suspect]
     Active Substance: PACLITAXEL
     Dosage: 260 MILLIGRAM/SQ. METER
     Route: 041

REACTIONS (8)
  - Mucosal inflammation [Not Recovered/Not Resolved]
  - Hepatic failure [Not Recovered/Not Resolved]
  - Alopecia [Not Recovered/Not Resolved]
  - Weight decreased [Not Recovered/Not Resolved]
  - Pseudocirrhosis [Not Recovered/Not Resolved]
  - Breast cancer metastatic [Fatal]
  - Neuropathy peripheral [Recovered/Resolved]
  - Diarrhoea [Not Recovered/Not Resolved]

NARRATIVE: CASE EVENT DATE: 20160202
